FAERS Safety Report 10776244 (Version 4)
Quarter: 2018Q1

REPORT INFORMATION
  Report Type: Report from Study
  Country: JP (occurrence: JP)
  Receive Date: 20150209
  Receipt Date: 20180208
  Transmission Date: 20180508
  Serious: Yes (Other)
  Sender: FDA-Public Use
  Company Number: JP-AMGEN-JPNCT2015010722

PATIENT
  Age: 48 Year
  Sex: Female

DRUGS (16)
  1. DENOSUMAB [Suspect]
     Active Substance: DENOSUMAB
     Indication: BREAST CANCER
     Dosage: 120 MG, UNK
     Route: 065
     Dates: start: 20110113
  2. AZUNOL [Concomitant]
     Active Substance: SODIUM GUALENATE
     Dosage: 2 MG, QID - 4 MG, AS NECESSARY
     Dates: start: 20111027
  3. CEFZON [Concomitant]
     Active Substance: CEFDINIR
     Dosage: 100 MG, TID
     Route: 048
     Dates: start: 20111029, end: 20140501
  4. LOXONIN [Concomitant]
     Active Substance: LOXOPROFEN SODIUM
     Dosage: 60 MG, AS NECESSARY
     Route: 048
     Dates: start: 20111029, end: 20111031
  5. CALONAL [Concomitant]
     Active Substance: ACETAMINOPHEN
     Dosage: 200 MG, TID
     Route: 048
     Dates: start: 201110
  6. ADALAT [Concomitant]
     Active Substance: NIFEDIPINE
     Indication: HYPERTENSION
     Dosage: 10 MG, TID
     Route: 048
     Dates: start: 20050405
  7. 5-FU [Concomitant]
     Active Substance: FLUOROURACIL
     Dosage: 740 MG, Q3WK
     Dates: start: 20110113, end: 20110317
  8. CLARITH [Concomitant]
     Active Substance: CLARITHROMYCIN
     Indication: OSTEONECROSIS OF JAW
     Dosage: 200 MG, UNK
     Route: 048
     Dates: start: 20120303
  9. LEUPROLIDE [Concomitant]
     Active Substance: LEUPROLIDE
     Dosage: UNK
     Dates: start: 20110708, end: 20130225
  10. TRASTUZUMAB. [Concomitant]
     Active Substance: TRASTUZUMAB
     Dosage: 280-380 MG, Q3WK
     Dates: start: 20110711, end: 20120730
  11. EPIRUBICIN [Concomitant]
     Active Substance: EPIRUBICIN
     Dosage: 140 MG, Q3WK
     Dates: start: 20110113, end: 20110317
  12. BETAMETHASONE. [Concomitant]
     Active Substance: BETAMETHASONE
     Dosage: UNK
     Dates: start: 20110114, end: 20110617
  13. NOLVADEX [Concomitant]
     Active Substance: TAMOXIFEN CITRATE
     Dosage: UNK
     Dates: start: 20110708
  14. CYCLOPHOSPHAMIDE. [Concomitant]
     Active Substance: CYCLOPHOSPHAMIDE
     Dosage: 740 MG, Q3WK
     Dates: start: 20110113, end: 20110317
  15. DOCETAXEL. [Concomitant]
     Active Substance: DOCETAXEL
     Dosage: 100 MG, Q3WK
     Dates: start: 20110407, end: 20110616
  16. XYLOCAINE [Concomitant]
     Active Substance: LIDOCAINE HYDROCHLORIDE
     Dosage: UNK
     Route: 058
     Dates: start: 20111029, end: 20111029

REACTIONS (1)
  - Periodontitis [Unknown]

NARRATIVE: CASE EVENT DATE: 20140428
